FAERS Safety Report 6054974-6 (Version None)
Quarter: 2009Q1

REPORT INFORMATION
  Report Type: 
  Country: None (occurrence: None)
  Receive Date: 20090122
  Receipt Date: 20081231
  Transmission Date: 20090719
  Serious: Yes (Other)
  Sender: FDA-Public Use
  Company Number: 2009S1000022

PATIENT
  Age: 35 Year
  Sex: Female

DRUGS (1)
  1. ACITRETIN [Suspect]
     Dosage: PO, 20 MG;QD;PO
     Route: 048

REACTIONS (7)
  - JOINT RANGE OF MOTION DECREASED [None]
  - MOVEMENT DISORDER [None]
  - OEDEMA PERIPHERAL [None]
  - PAIN IN EXTREMITY [None]
  - PSEUDARTHROSIS [None]
  - RESORPTION BONE INCREASED [None]
  - SPINAL OSTEOARTHRITIS [None]
